FAERS Safety Report 9821962 (Version 1)
Quarter: 2014Q1

REPORT INFORMATION
  Report Type: Spontaneous
  Country: ES (occurrence: ES)
  Receive Date: 20140116
  Receipt Date: 20140116
  Transmission Date: 20141002
  Serious: Yes (Hospitalization, Other)
  Sender: FDA-Public Use
  Company Number: ES-GILEAD-2014-0092155

PATIENT
  Age: 46 Year
  Sex: Male

DRUGS (1)
  1. ATRIPLA [Suspect]
     Indication: HIV INFECTION
     Route: 065
     Dates: start: 20120820, end: 20130122

REACTIONS (7)
  - Hepatorenal syndrome [Recovered/Resolved]
  - Hepatic encephalopathy [Recovered/Resolved]
  - Jaundice [Recovered/Resolved]
  - Ascites [Recovered/Resolved]
  - Oedema [Recovered/Resolved]
  - Bladder spasm [Recovered/Resolved]
  - Liver disorder [Recovered/Resolved]
